APPROVED DRUG PRODUCT: TINIDAZOLE
Active Ingredient: TINIDAZOLE
Strength: 250MG
Dosage Form/Route: TABLET;ORAL
Application: A201172 | Product #001
Applicant: HIKMA PHARMACEUTICALS USA INC
Approved: Apr 30, 2012 | RLD: No | RS: No | Type: DISCN